FAERS Safety Report 6573760-1 (Version None)
Quarter: 2010Q1

REPORT INFORMATION
  Report Type: 
  Country: None (occurrence: None)
  Receive Date: 20100208
  Receipt Date: 20100204
  Transmission Date: 20100710
  Serious: Yes (Hospitalization)
  Sender: FDA-Public Use
  Company Number: B0631191A

PATIENT
  Sex: Female

DRUGS (3)
  1. ZINNAT INJECTABLE [Suspect]
     Indication: DRUG USE FOR UNKNOWN INDICATION
     Route: 042
     Dates: start: 20091019, end: 20091019
  2. XANAX [Concomitant]
     Indication: PREMEDICATION
     Route: 048
     Dates: start: 20091019, end: 20091019
  3. NAROPIN [Concomitant]
     Route: 053
     Dates: start: 20091019, end: 20091019

REACTIONS (10)
  - ANAPHYLACTIC SHOCK [None]
  - BRONCHOSPASM [None]
  - CIRCULATORY COLLAPSE [None]
  - CYANOSIS [None]
  - HYPOTENSION [None]
  - HYPOXIA [None]
  - LUNG INFECTION [None]
  - RASH GENERALISED [None]
  - RESPIRATORY DISORDER [None]
  - TACHYCARDIA [None]
